FAERS Safety Report 15202882 (Version 2)
Quarter: 2018Q3

REPORT INFORMATION
  Report Type: Spontaneous
  Country: US (occurrence: US)
  Receive Date: 20180726
  Receipt Date: 20180918
  Transmission Date: 20181010
  Serious: Yes (Other)
  Sender: FDA-Public Use
  Company Number: US-PFIZER INC-2018297298

PATIENT
  Age: 75 Year
  Sex: Female

DRUGS (5)
  1. EFFEXOR XR [Suspect]
     Active Substance: VENLAFAXINE HYDROCHLORIDE
     Dosage: 150 MG, UNK
     Dates: start: 201806
  2. KETOROLAC TROMETHAMINE. [Concomitant]
     Active Substance: KETOROLAC TROMETHAMINE
     Dosage: UNK
     Route: 047
     Dates: end: 20180805
  3. EFFEXOR XR [Suspect]
     Active Substance: VENLAFAXINE HYDROCHLORIDE
     Dosage: 150 MG, UNK
     Dates: start: 2007
  4. PREDNISOLONE. [Concomitant]
     Active Substance: PREDNISOLONE
     Dosage: UNK
     Route: 047
     Dates: end: 20180805
  5. VIGAMOX [Concomitant]
     Active Substance: MOXIFLOXACIN HYDROCHLORIDE
     Dosage: UNK
     Route: 047
     Dates: end: 20180805

REACTIONS (7)
  - Depressed mood [Not Recovered/Not Resolved]
  - Vertigo [Unknown]
  - Malaise [Recovered/Resolved]
  - Drug effect decreased [Unknown]
  - Frustration tolerance decreased [Unknown]
  - Cataract [Unknown]
  - Sluggishness [Unknown]
